FAERS Safety Report 8577952-1 (Version None)
Quarter: 2012Q3

REPORT INFORMATION
  Report Type: 
  Country: None (occurrence: None)
  Receive Date: 20120808
  Receipt Date: 20120731
  Transmission Date: 20120928
  Serious: Yes (Hospitalization)
  Sender: FDA-Public Use
  Company Number: US-AMGEN-USACT2012048006

PATIENT
  Age: 66 Year
  Sex: Female
  Weight: 160.8 kg

DRUGS (13)
  1. HUMALOG [Concomitant]
     Dosage: 5 MG,WITH EACH MEAL
  2. DARBEPOETIN ALFA [Suspect]
     Indication: CARDIAC FAILURE
     Dosage: UNK
     Dates: start: 20070124
  3. BYETTA [Concomitant]
     Dosage: 10 MUG, TID
  4. LANTUS [Concomitant]
     Dosage: 20 UNIT, QHS
  5. SULFAMETHOXAZOLE [Concomitant]
     Dosage: UNK UNK, BID
  6. DARBEPOETIN ALFA [Suspect]
  7. AMLODIPINE [Concomitant]
     Dosage: 10 MG, QD
  8. ALLOPURINOL [Concomitant]
     Dosage: 300 MG, QD
  9. FUROSEMIDE [Concomitant]
     Dosage: 0.25 DF, QD
  10. CARVEDILOL [Concomitant]
     Dosage: 37.5 MG, BID
  11. LISINOPRIL [Concomitant]
     Dosage: 40 MG, QD
  12. METFORMIN HYDROCHLORIDE [Concomitant]
     Dosage: 1000 MG, BID
  13. SIMVASTATIN [Concomitant]
     Dosage: 80 MG, QHS

REACTIONS (2)
  - METABOLIC ENCEPHALOPATHY [None]
  - CELLULITIS [None]
